FAERS Safety Report 20336161 (Version 1)
Quarter: 2022Q1

REPORT INFORMATION
  Report Type: Spontaneous
  Country: CN (occurrence: CN)
  Receive Date: 20220114
  Receipt Date: 20220114
  Transmission Date: 20220424
  Serious: Yes (Other)
  Sender: FDA-Public Use
  Company Number: CN-PFIZER INC-202101771201

PATIENT
  Age: 10 Year
  Sex: Male
  Weight: 38 kg

DRUGS (9)
  1. MEROPENEM [Interacting]
     Active Substance: MEROPENEM
     Indication: Pseudomonas infection
     Dosage: 0.5 G, 4X/DAY
     Route: 041
     Dates: start: 20170723, end: 20170724
  2. VALPROATE SODIUM [Interacting]
     Active Substance: VALPROATE SODIUM
     Indication: Barth syndrome
     Dosage: 0.5 G, 4X/DAY
     Dates: start: 20170712, end: 20170724
  3. VALPROATE SODIUM [Interacting]
     Active Substance: VALPROATE SODIUM
     Indication: Seizure
  4. CEPHALOSPORIN C [Concomitant]
     Active Substance: CEPHALOSPORIN C
     Indication: Headache
  5. MANNITOL [Concomitant]
     Active Substance: MANNITOL
     Indication: Seizure
     Dosage: 150 ML
  6. MIDAZOLAM [Concomitant]
     Active Substance: MIDAZOLAM
     Indication: Sedative therapy
     Dosage: UNK
  7. DIAZEPAM [Concomitant]
     Active Substance: DIAZEPAM
     Indication: Seizure
     Dosage: 5 MG
  8. ACYCLOVIR [Concomitant]
     Active Substance: ACYCLOVIR
     Dosage: 300 MG, 3X/DAY
     Route: 042
  9. FRUCTOSE\GLYCERIN\SODIUM CHLORIDE [Concomitant]
     Active Substance: FRUCTOSE\GLYCERIN\SODIUM CHLORIDE
     Indication: Reduction of increased intracranial pressure
     Dosage: UNK (5 ML/KG)

REACTIONS (4)
  - Drug interaction [Unknown]
  - Antidepressant drug level below therapeutic [Recovered/Resolved]
  - Seizure [Unknown]
  - Off label use [Unknown]

NARRATIVE: CASE EVENT DATE: 20170723
